FAERS Safety Report 21729177 (Version 1)
Quarter: 2022Q4

REPORT INFORMATION
  Report Type: Spontaneous
  Country: US (occurrence: US)
  Receive Date: 20221214
  Receipt Date: 20221214
  Transmission Date: 20230112
  Serious: No
  Sender: FDA-Public Use
  Company Number: US-GSKCCFUS-Case-01576885_AE-89132

PATIENT
  Age: 75 Year
  Sex: Female

DRUGS (1)
  1. NUCALA [Suspect]
     Active Substance: MEPOLIZUMAB
     Indication: Asthma
     Dosage: 100 MG
     Dates: start: 202210

REACTIONS (10)
  - Abdominal pain upper [Recovering/Resolving]
  - Nasal congestion [Not Recovered/Not Resolved]
  - Feeding disorder [Unknown]
  - Gastric disorder [Unknown]
  - Decreased appetite [Unknown]
  - Throat irritation [Unknown]
  - Asthma [Unknown]
  - Multiple allergies [Unknown]
  - Drug ineffective [Unknown]
  - Wrong technique in product usage process [Unknown]

NARRATIVE: CASE EVENT DATE: 20221129
